FAERS Safety Report 14918830 (Version 18)
Quarter: 2020Q4

REPORT INFORMATION
  Report Type: Spontaneous
  Country: US (occurrence: US)
  Receive Date: 20180521
  Receipt Date: 20201023
  Transmission Date: 20210113
  Serious: Yes (Other)
  Sender: FDA-Public Use
  Company Number: US-PFIZER INC-2018206828

PATIENT
  Age: 58 Year
  Sex: Female
  Weight: 85 kg

DRUGS (2)
  1. LYRICA [Suspect]
     Active Substance: PREGABALIN
     Indication: NEURALGIA
     Dosage: 150 MG, 2X/DAY
     Route: 048
  2. LYRICA [Suspect]
     Active Substance: PREGABALIN
     Indication: FIBROMYALGIA
     Dosage: 150 MG, 3X/DAY
     Route: 048

REACTIONS (16)
  - Intentional product use issue [Unknown]
  - Product prescribing error [Unknown]
  - Swelling [Unknown]
  - Nausea [Recovered/Resolved]
  - Illness [Not Recovered/Not Resolved]
  - Pain [Unknown]
  - Feeling hot [Unknown]
  - Drug withdrawal syndrome [Recovered/Resolved]
  - Feeding disorder [Recovered/Resolved]
  - Drug hypersensitivity [Unknown]
  - Abdominal pain upper [Recovered/Resolved]
  - Muscle spasms [Unknown]
  - Fatigue [Unknown]
  - Breast cancer female [Unknown]
  - Vomiting [Unknown]
  - Dyskinesia [Unknown]

NARRATIVE: CASE EVENT DATE: 201908
